FAERS Safety Report 24707748 (Version 1)
Quarter: 2024Q4

REPORT INFORMATION
  Report Type: Spontaneous
  Country: US (occurrence: None)
  Receive Date: 20241206
  Receipt Date: 20241206
  Transmission Date: 20250115
  Serious: No
  Sender: Public
  Company Number: None

PATIENT
  Age: 58 Year
  Sex: Female
  Weight: 60.3 kg

DRUGS (4)
  1. OCTAGAM IMMUNE GLOBULIN (HUMAN) [Suspect]
     Active Substance: HUMAN IMMUNOGLOBULIN G
     Indication: Selective IgG subclass deficiency
     Dosage: 30 G GRAM(S)  EVERY 4 WEEKS INTRVENOUS DRIP?
     Route: 041
     Dates: start: 20241121
  2. SODIUM CHLORIDE 500ML [Concomitant]
  3. DIPHEHYDRAMINE 25MG [Concomitant]
  4. TYLENOL [Concomitant]
     Active Substance: ACETAMINOPHEN

REACTIONS (4)
  - Urticaria [None]
  - Rash [None]
  - Eczema [None]
  - Transient acantholytic dermatosis [None]

NARRATIVE: CASE EVENT DATE: 20241204
